FAERS Safety Report 17711478 (Version 1)
Quarter: 2020Q2

REPORT INFORMATION
  Report Type: Spontaneous
  Country: US (occurrence: US)
  Receive Date: 20200424
  Receipt Date: 20200424
  Transmission Date: 20200714
  Serious: No
  Sender: FDA-Public Use
  Company Number: None

PATIENT
  Age: 77 Year
  Sex: Male

DRUGS (1)
  1. VOTRIENT [Suspect]
     Active Substance: PAZOPANIB HYDROCHLORIDE
     Dosage: OTHER DOSE:400;?
     Route: 048
     Dates: start: 20200217

REACTIONS (1)
  - Tunnel vision [None]

NARRATIVE: CASE EVENT DATE: 20200420
